FAERS Safety Report 5088209-8 (Version None)
Quarter: 2006Q3

REPORT INFORMATION
  Report Type: 
  Country: None (occurrence: None)
  Receive Date: 20060823
  Receipt Date: 20060823
  Transmission Date: 20061208
  Serious: Yes (Hospitalization)
  Sender: FDA-Public Use
  Company Number: None

PATIENT
  Age: 57 Year
  Sex: Male
  Weight: 138.4 kg

DRUGS (1)
  1. NPH INSULIN [Suspect]
     Indication: DIABETES MELLITUS
     Dosage: 40U AM 35 U PM SEE TO LEFT SQ [SEVERAL YEARS]
     Route: 058

REACTIONS (3)
  - HYPOGLYCAEMIA [None]
  - LOSS OF CONSCIOUSNESS [None]
  - SYNCOPE [None]
